FAERS Safety Report 15405606 (Version 3)
Quarter: 2021Q4

REPORT INFORMATION
  Report Type: Spontaneous
  Country: US (occurrence: US)
  Receive Date: 20180920
  Receipt Date: 20211019
  Transmission Date: 20220303
  Serious: No
  Sender: FDA-Public Use
  Company Number: US-BRISTOL-MYERS SQUIBB COMPANY-BMS-2018-087055

PATIENT
  Age: 56 Year
  Sex: Female

DRUGS (3)
  1. SPRYCEL [Suspect]
     Active Substance: DASATINIB
     Indication: Chronic myeloid leukaemia
     Dosage: 100 MG, QD
     Route: 048
     Dates: start: 20160804
  2. SPRYCEL [Suspect]
     Active Substance: DASATINIB
     Dosage: 20 MILLIGRAM, QD
     Route: 048
     Dates: start: 20210703
  3. WELLBUTRIN [Suspect]
     Active Substance: BUPROPION HYDROCHLORIDE
     Indication: Product used for unknown indication
     Dosage: UNK MG, UNK
     Route: 065
     Dates: start: 201807

REACTIONS (3)
  - Headache [Unknown]
  - Dry eye [Unknown]
  - Conjunctival irritation [Unknown]

NARRATIVE: CASE EVENT DATE: 20180829
